FAERS Safety Report 5995050-8 (Version None)
Quarter: 2008Q4

REPORT INFORMATION
  Report Type: 
  Country: None (occurrence: None)
  Receive Date: 20081212
  Receipt Date: 20080923
  Transmission Date: 20090506
  Serious: Yes (Other)
  Sender: FDA-Public Use
  Company Number: US-ABBOTT-08P-163-0477867-99

PATIENT
  Sex: Male
  Weight: 74.91 kg

DRUGS (7)
  1. HUMIRA [Suspect]
     Indication: ANKYLOSING SPONDYLITIS
     Route: 058
     Dates: start: 20060606, end: 20080911
  2. AMLODIPINE W/VALSARTAN [Concomitant]
     Indication: HYPERTENSION
     Dosage: 10/320 MG
     Route: 048
  3. DYAZIDE [Concomitant]
     Indication: HYPERTENSION
     Dosage: 30/25 MG
     Route: 048
  4. DEFLAZACORT [Concomitant]
     Indication: DIABETES MELLITUS
     Route: 048
  5. OXYMORPHONE HCL [Concomitant]
     Indication: PAIN
     Route: 048
  6. PREGABALIN [Concomitant]
     Indication: PAIN
     Route: 048
  7. ERGOCALCIFEROL [Concomitant]
     Indication: PAIN
     Route: 048

REACTIONS (5)
  - BASAL CELL CARCINOMA [None]
  - DENTAL CARIES [None]
  - NECK PAIN [None]
  - SKIN EXFOLIATION [None]
  - TOOTH ABSCESS [None]
